FAERS Safety Report 4312465-4 (Version None)
Quarter: 2004Q1

REPORT INFORMATION
  Report Type: 
  Country: None (occurrence: None)
  Receive Date: 20040305
  Receipt Date: 20040225
  Transmission Date: 20041129
  Serious: Yes (Other)
  Sender: FDA-Public Use
  Company Number: PHEH2004US02411

PATIENT
  Age: 4 Month

DRUGS (2)
  1. ELIDEL [Suspect]
     Indication: DRY SKIN
     Dosage: UNK, BID
     Route: 061
     Dates: start: 20040201, end: 20040201
  2. AMOXICILLIN [Suspect]
     Indication: EAR INFECTION
     Route: 048

REACTIONS (3)
  - EAR INFECTION [None]
  - HENOCH-SCHONLEIN PURPURA [None]
  - RASH [None]
